FAERS Safety Report 20660284 (Version 15)
Quarter: 2022Q3

REPORT INFORMATION
  Report Type: Spontaneous
  Country: BR (occurrence: BR)
  Receive Date: 20220331
  Receipt Date: 20220920
  Transmission Date: 20221026
  Serious: Yes (Life-Threatening, Hospitalization, Other)
  Sender: FDA-Public Use
  Company Number: BR-PFIZER INC-202200482241

PATIENT
  Age: 68 Year
  Sex: Female
  Weight: 42 kg

DRUGS (9)
  1. ALPRAZOLAM [Suspect]
     Active Substance: ALPRAZOLAM
     Indication: Depression
     Dosage: 2.5MG IN AM AND 2.5MG AT NIGHT
  2. ALPRAZOLAM [Suspect]
     Active Substance: ALPRAZOLAM
     Dosage: 2 MG
     Dates: start: 2007
  3. ALPRAZOLAM [Suspect]
     Active Substance: ALPRAZOLAM
     Dosage: 4.5 MG, DAILY (2MG IN AM + IN THE AFTERNOON/NIGHT TAKES 2.5 MG)
     Dates: start: 202202
  4. ALPRAZOLAM [Suspect]
     Active Substance: ALPRAZOLAM
     Dosage: 6.5 MG, DAILY (3MG IN AM + 3.5MG AT NIGHT)
  5. ALPRAZOLAM [Suspect]
     Active Substance: ALPRAZOLAM
     Dosage: 1 MG
     Dates: start: 202202
  6. ALPRAZOLAM [Suspect]
     Active Substance: ALPRAZOLAM
     Dosage: UNK
  7. OMEPRAZOLE [Concomitant]
     Active Substance: OMEPRAZOLE
     Dosage: UNK
     Route: 042
  8. OMEPRAZOLE [Concomitant]
     Active Substance: OMEPRAZOLE
     Dosage: UNK
     Route: 048
  9. TENOXICAM [Concomitant]
     Active Substance: TENOXICAM
     Dosage: UNK

REACTIONS (79)
  - Suicidal ideation [Unknown]
  - Drug dependence [Unknown]
  - Withdrawal syndrome [Unknown]
  - Respiratory depression [Unknown]
  - Gastrointestinal oedema [Unknown]
  - Blindness [Not Recovered/Not Resolved]
  - Abdominal pain upper [Not Recovered/Not Resolved]
  - Abdominal distension [Not Recovered/Not Resolved]
  - Pain [Not Recovered/Not Resolved]
  - Flatulence [Not Recovered/Not Resolved]
  - Dermatitis [Not Recovered/Not Resolved]
  - Injury [Not Recovered/Not Resolved]
  - Pulmonary pain [Not Recovered/Not Resolved]
  - Muscular weakness [Not Recovered/Not Resolved]
  - Myalgia [Not Recovered/Not Resolved]
  - Nervousness [Unknown]
  - Gait inability [Unknown]
  - Blood pressure increased [Unknown]
  - Spinal cord disorder [Unknown]
  - Alopecia [Unknown]
  - Dizziness [Not Recovered/Not Resolved]
  - Blood pressure decreased [Unknown]
  - Tremor [Not Recovered/Not Resolved]
  - Dyspnoea [Not Recovered/Not Resolved]
  - Gastrointestinal inflammation [Unknown]
  - Headache [Not Recovered/Not Resolved]
  - Balance disorder [Unknown]
  - Decreased appetite [Not Recovered/Not Resolved]
  - Visual impairment [Unknown]
  - Heart rate increased [Not Recovered/Not Resolved]
  - Palpitations [Not Recovered/Not Resolved]
  - Anxiety [Not Recovered/Not Resolved]
  - Gastritis [Unknown]
  - Skin injury [Unknown]
  - Dermatitis allergic [Unknown]
  - Insomnia [Not Recovered/Not Resolved]
  - Vision blurred [Not Recovered/Not Resolved]
  - Change of bowel habit [Unknown]
  - COVID-19 [Unknown]
  - Hepatic cyst [Unknown]
  - Vomiting [Unknown]
  - Parosmia [Unknown]
  - Dysgeusia [Unknown]
  - Pyrexia [Unknown]
  - Feeling hot [Unknown]
  - Abdominal pain upper [Not Recovered/Not Resolved]
  - Constipation [Unknown]
  - Anger [Unknown]
  - Thirst [Unknown]
  - Feeling of despair [Unknown]
  - Loss of personal independence in daily activities [Not Recovered/Not Resolved]
  - Weight decreased [Unknown]
  - Abdominal discomfort [Unknown]
  - Skin discolouration [Unknown]
  - Vein disorder [Unknown]
  - Spinal pain [Unknown]
  - Depressed mood [Unknown]
  - Feeling abnormal [Unknown]
  - Eating disorder [Unknown]
  - Malaise [Not Recovered/Not Resolved]
  - Asthenia [Unknown]
  - Sluggishness [Unknown]
  - Dysstasia [Not Recovered/Not Resolved]
  - Emotional distress [Unknown]
  - Agitation [Unknown]
  - Dyspepsia [Not Recovered/Not Resolved]
  - Drug effect less than expected [Unknown]
  - Cough [Unknown]
  - Off label use [Unknown]
  - Drug ineffective for unapproved indication [Not Recovered/Not Resolved]
  - Hepatic pain [Unknown]
  - Rash macular [Unknown]
  - Cognitive disorder [Unknown]
  - Heart rate decreased [Not Recovered/Not Resolved]
  - Chest pain [Unknown]
  - Therapeutic response unexpected [Unknown]
  - Impatience [Unknown]
  - Incorrect product administration duration [Unknown]
  - Intentional product misuse [Unknown]

NARRATIVE: CASE EVENT DATE: 20070101
